FAERS Safety Report 25469091 (Version 1)
Quarter: 2025Q2

REPORT INFORMATION
  Report Type: Spontaneous
  Country: ES (occurrence: ES)
  Receive Date: 20250623
  Receipt Date: 20250623
  Transmission Date: 20250716
  Serious: Yes (Hospitalization)
  Sender: MYLAN
  Company Number: None

PATIENT
  Age: 81 Year
  Sex: Female
  Weight: 59.4 kg

DRUGS (12)
  1. HYDROCHLOROTHIAZIDE\VALSARTAN [Suspect]
     Active Substance: HYDROCHLOROTHIAZIDE\VALSARTAN
     Indication: Hypertension
     Dosage: 0.5 DOSAGE FORM, QD (HALF A TABLET AT BREAKFAST)
     Dates: start: 20131023, end: 20250503
  2. HYDROCHLOROTHIAZIDE\VALSARTAN [Suspect]
     Active Substance: HYDROCHLOROTHIAZIDE\VALSARTAN
     Dosage: 0.5 DOSAGE FORM, QD (HALF A TABLET AT BREAKFAST)
     Route: 048
     Dates: start: 20131023, end: 20250503
  3. HYDROCHLOROTHIAZIDE\VALSARTAN [Suspect]
     Active Substance: HYDROCHLOROTHIAZIDE\VALSARTAN
     Dosage: 0.5 DOSAGE FORM, QD (HALF A TABLET AT BREAKFAST)
     Route: 048
     Dates: start: 20131023, end: 20250503
  4. HYDROCHLOROTHIAZIDE\VALSARTAN [Suspect]
     Active Substance: HYDROCHLOROTHIAZIDE\VALSARTAN
     Dosage: 0.5 DOSAGE FORM, QD (HALF A TABLET AT BREAKFAST)
     Dates: start: 20131023, end: 20250503
  5. JARDIANCE [Suspect]
     Active Substance: EMPAGLIFLOZIN
     Indication: Diabetes mellitus
     Dosage: 10 MILLIGRAM, QD (EVERY 24 HOURS) 30 TABLETS
     Dates: start: 20241011, end: 20250503
  6. JARDIANCE [Suspect]
     Active Substance: EMPAGLIFLOZIN
     Dosage: 10 MILLIGRAM, QD (EVERY 24 HOURS) 30 TABLETS
     Route: 048
     Dates: start: 20241011, end: 20250503
  7. JARDIANCE [Suspect]
     Active Substance: EMPAGLIFLOZIN
     Dosage: 10 MILLIGRAM, QD (EVERY 24 HOURS) 30 TABLETS
     Route: 048
     Dates: start: 20241011, end: 20250503
  8. JARDIANCE [Suspect]
     Active Substance: EMPAGLIFLOZIN
     Dosage: 10 MILLIGRAM, QD (EVERY 24 HOURS) 30 TABLETS
     Dates: start: 20241011, end: 20250503
  9. SITAGLIPTIN [Concomitant]
     Active Substance: SITAGLIPTIN
     Indication: Diabetes mellitus
     Dosage: 100 MILLIGRAM, QD (EVERY 24 HOURS)
     Dates: start: 20240910
  10. SITAGLIPTIN [Concomitant]
     Active Substance: SITAGLIPTIN
     Dosage: 100 MILLIGRAM, QD (EVERY 24 HOURS)
     Route: 048
     Dates: start: 20240910
  11. SITAGLIPTIN [Concomitant]
     Active Substance: SITAGLIPTIN
     Dosage: 100 MILLIGRAM, QD (EVERY 24 HOURS)
     Route: 048
     Dates: start: 20240910
  12. SITAGLIPTIN [Concomitant]
     Active Substance: SITAGLIPTIN
     Dosage: 100 MILLIGRAM, QD (EVERY 24 HOURS)
     Dates: start: 20240910

REACTIONS (2)
  - Acute kidney injury [Recovered/Resolved]
  - Prerenal failure [Recovered/Resolved]

NARRATIVE: CASE EVENT DATE: 20250503
